FAERS Safety Report 5014080-6 (Version None)
Quarter: 2006Q2

REPORT INFORMATION
  Report Type: 
  Country: None (occurrence: None)
  Receive Date: 20060414
  Receipt Date: 20060131
  Transmission Date: 20061013
  Serious: No
  Sender: FDA-Public Use
  Company Number: 2006SP000552

PATIENT
  Age: 54 Year
  Sex: Male
  Weight: 88.4514 kg

DRUGS (8)
  1. LUNESTA [Suspect]
     Indication: INSOMNIA
     Dosage: 2 MG;HS;ORAL
     Route: 048
     Dates: start: 20050701
  2. METOPROLOL [Concomitant]
  3. OXYCONTIN [Concomitant]
  4. DOCUSATE [Concomitant]
  5. SEROQUEL [Concomitant]
  6. SKELAXIN [Concomitant]
  7. ELAVIL [Concomitant]
  8. AMBIEN [Concomitant]

REACTIONS (1)
  - MIDDLE INSOMNIA [None]
